FAERS Safety Report 5237983-6 (Version None)
Quarter: 2007Q1

REPORT INFORMATION
  Report Type: 
  Country: None (occurrence: None)
  Receive Date: 20070214
  Receipt Date: 20070205
  Transmission Date: 20070707
  Serious: Yes (Other)
  Sender: FDA-Public Use
  Company Number: SE-PFIZER INC-2006114419

PATIENT
  Age: 77 Year
  Sex: Male
  Weight: 55 kg

DRUGS (22)
  1. ZYVOXID TABLET [Suspect]
     Indication: PLEURAL INFECTION
     Route: 048
     Dates: start: 20060906, end: 20060921
  2. ZYVOXID TABLET [Suspect]
     Indication: ENTEROCOCCAL INFECTION
  3. EMGESAN [Concomitant]
  4. PREDNISOLONE [Concomitant]
  5. KAJOS [Concomitant]
  6. ACYCLOVIR [Concomitant]
  7. SPIRONOLACTONE [Concomitant]
  8. INSULATARD [Concomitant]
  9. NOVORAPID [Concomitant]
  10. OXYCONTIN [Concomitant]
  11. MORPHINE [Concomitant]
  12. OMEPRAZOLE [Concomitant]
  13. IMOVANE [Concomitant]
  14. TRYPTIZOL [Concomitant]
  15. OPTINATE [Concomitant]
  16. SIMVASTATIN [Concomitant]
  17. EMCONCOR [Concomitant]
  18. ZOLPIDEM TARTRATE [Concomitant]
  19. COMBIVENT [Concomitant]
  20. FRAGMIN [Concomitant]
  21. CATAPRESAN [Concomitant]
  22. ALL OTHER THERAPEUTIC PRODUCTS [Concomitant]

REACTIONS (2)
  - CONFUSIONAL STATE [None]
  - PSYCHOTIC DISORDER [None]
